FAERS Safety Report 24157379 (Version 4)
Quarter: 2024Q4

REPORT INFORMATION
  Report Type: Spontaneous
  Country: US (occurrence: US)
  Receive Date: 20240731
  Receipt Date: 20241110
  Transmission Date: 20250115
  Serious: No
  Sender: SANOFI AVENTIS
  Company Number: US-SANOFI-02153647

PATIENT
  Age: 84 Year
  Sex: Male
  Weight: 68.18 kg

DRUGS (5)
  1. DUPIXENT [Suspect]
     Active Substance: DUPILUMAB
     Indication: Pemphigoid
     Dosage: UNK UNK, 1X
     Dates: start: 20240613, end: 20240613
  2. DUPIXENT [Suspect]
     Active Substance: DUPILUMAB
     Indication: Dermatitis atopic
     Dosage: 300 MG, QOW
     Dates: start: 202406, end: 20241022
  3. PREDNISONE [Concomitant]
     Active Substance: PREDNISONE
  4. KEYTRUDA [Concomitant]
     Active Substance: PEMBROLIZUMAB
  5. TRULICITY [Concomitant]
     Active Substance: DULAGLUTIDE

REACTIONS (10)
  - Injection site bruising [Unknown]
  - Injection site laceration [Unknown]
  - Radiation injury [Unknown]
  - Weight decreased [Unknown]
  - Blister [Not Recovered/Not Resolved]
  - Drug ineffective [Unknown]
  - Device issue [Unknown]
  - Off label use [Unknown]
  - Accidental exposure to product [Unknown]
  - Exposure via skin contact [Unknown]

NARRATIVE: CASE EVENT DATE: 20240101
